FAERS Safety Report 5249104-4 (Version None)
Quarter: 2007Q1

REPORT INFORMATION
  Report Type: 
  Country: None (occurrence: None)
  Receive Date: 20070228
  Receipt Date: 20060809
  Transmission Date: 20070707
  Serious: No
  Sender: FDA-Public Use
  Company Number: US-GLAXOSMITHKLINE-A0616007A

PATIENT
  Age: 57 Year
  Sex: Female

DRUGS (8)
  1. VALTREX [Suspect]
     Indication: HERPES ZOSTER
     Dosage: 500MG PER DAY
     Route: 048
     Dates: start: 20051201
  2. EVISTA [Concomitant]
  3. SYNTHROID [Concomitant]
  4. ZYRTEC [Concomitant]
  5. CALCIUM [Concomitant]
  6. ACIPHEX [Concomitant]
  7. VITAMINS [Concomitant]
  8. ASPIRIN [Concomitant]

REACTIONS (1)
  - DRUG INEFFECTIVE [None]
